FAERS Safety Report 11413230 (Version 1)
Quarter: 2015Q3

REPORT INFORMATION
  Report Type: Spontaneous
  Country: TW (occurrence: TW)
  Receive Date: 20150824
  Receipt Date: 20150824
  Transmission Date: 20151125
  Serious: Yes (Death)
  Sender: FDA-Public Use
  Company Number: TW-JNJFOC-20150812834

PATIENT
  Age: 81 Year
  Sex: Female
  Weight: 70 kg

DRUGS (14)
  1. FOLIC ACID. [Concomitant]
     Active Substance: FOLIC ACID
     Indication: PEMPHIGUS
     Dosage: 5-10MG
     Route: 065
     Dates: start: 20130823, end: 20150421
  2. SANDIMMUN [Concomitant]
     Active Substance: CYCLOSPORINE
     Indication: PEMPHIGUS
     Dosage: 25-100MG/QD-Q2D
     Route: 065
     Dates: start: 20141125, end: 20150810
  3. DESLORATADINE. [Concomitant]
     Active Substance: DESLORATADINE
     Indication: PEMPHIGUS
     Dosage: ONCE NIGHT
     Route: 065
     Dates: start: 20150106, end: 20150810
  4. INAH [Concomitant]
     Indication: ANTIBIOTIC PROPHYLAXIS
     Dosage: QDAC
     Route: 065
     Dates: start: 20150609, end: 20150810
  5. DIGOXIN. [Concomitant]
     Active Substance: DIGOXIN
     Indication: CARDIAC FAILURE CONGESTIVE
     Route: 065
     Dates: start: 20150122, end: 20150810
  6. STELARA [Suspect]
     Active Substance: USTEKINUMAB
     Indication: PSORIASIS
     Dosage: 0.5 ML
     Route: 058
     Dates: start: 20150123, end: 20150810
  7. METHOTREXATE [Concomitant]
     Active Substance: METHOTREXATE
     Indication: PEMPHIGUS
     Dosage: 7.5-17.5MG
     Route: 065
     Dates: start: 20130823, end: 20150810
  8. LEVOCETIRIZINE [Concomitant]
     Active Substance: LEVOCETIRIZINE
     Indication: RHINITIS ALLERGIC
     Dosage: ONCE NIGHT
     Route: 065
     Dates: start: 20141107, end: 20150326
  9. WARFARIN [Concomitant]
     Active Substance: WARFARIN
     Indication: CARDIAC VALVE DISEASE
     Dosage: AR
     Route: 065
     Dates: start: 20141204, end: 20150810
  10. SPIRONOLACTONE. [Concomitant]
     Active Substance: SPIRONOLACTONE
     Indication: CARDIAC FAILURE CONGESTIVE
     Route: 065
     Dates: start: 20120801, end: 20150810
  11. PRAVASTATIN [Concomitant]
     Active Substance: PRAVASTATIN\PRAVASTATIN SODIUM
     Indication: CORONARY ARTERY DISEASE
     Dosage: ONCE NIGHT
     Route: 065
     Dates: start: 20140722, end: 20150810
  12. SILYMARIN [Concomitant]
     Active Substance: MILK THISTLE
     Indication: HEPATIC FUNCTION ABNORMAL
     Route: 065
     Dates: start: 20141125, end: 20150810
  13. ALLOPURINOL. [Concomitant]
     Active Substance: ALLOPURINOL
     Indication: BLOOD URIC ACID
     Route: 065
     Dates: start: 20150122, end: 20150810
  14. MICARDIS [Concomitant]
     Active Substance: TELMISARTAN
     Indication: HYPERTENSION
     Route: 065
     Dates: start: 20150205, end: 20150810

REACTIONS (2)
  - Death [Fatal]
  - Mycobacterium tuberculosis complex test positive [Unknown]

NARRATIVE: CASE EVENT DATE: 20150327
